FAERS Safety Report 8301622-8 (Version None)
Quarter: 2012Q2

REPORT INFORMATION
  Report Type: 
  Country: None (occurrence: None)
  Receive Date: 20120420
  Receipt Date: 20120410
  Transmission Date: 20120825
  Serious: Yes (Other)
  Sender: FDA-Public Use
  Company Number: US-ROCHE-1058770

PATIENT
  Sex: Female
  Weight: 84.444 kg

DRUGS (2)
  1. XELODA [Suspect]
     Indication: BREAST CANCER METASTATIC
     Route: 048
     Dates: start: 20020101
  2. XELODA [Suspect]
     Route: 048
     Dates: start: 20120310

REACTIONS (7)
  - MUSCULOSKELETAL STIFFNESS [None]
  - SKIN EXFOLIATION [None]
  - PAIN IN EXTREMITY [None]
  - NEUROPATHY PERIPHERAL [None]
  - DRY SKIN [None]
  - DIARRHOEA [None]
  - ERYTHEMA [None]
